FAERS Safety Report 19195561 (Version 23)
Quarter: 2022Q4

REPORT INFORMATION
  Report Type: Spontaneous
  Country: US (occurrence: US)
  Receive Date: 20210429
  Receipt Date: 20221028
  Transmission Date: 20230113
  Serious: Yes (Hospitalization, Other)
  Sender: FDA-Public Use
  Company Number: US-BIOGEN-2021BI01003247

PATIENT
  Sex: Female

DRUGS (6)
  1. TYSABRI [Suspect]
     Active Substance: NATALIZUMAB
     Indication: Multiple sclerosis
     Dosage: INFUSE OVER ONE HOUR
     Route: 050
     Dates: start: 20120120, end: 20130816
  2. TYSABRI [Suspect]
     Active Substance: NATALIZUMAB
     Dosage: INFUSED OVER ONE HOUR
     Route: 050
     Dates: start: 20130917, end: 20210126
  3. TYSABRI [Suspect]
     Active Substance: NATALIZUMAB
     Dosage: INFUSED OVER ONE HOUR
     Route: 050
     Dates: start: 20130917
  4. TYSABRI [Suspect]
     Active Substance: NATALIZUMAB
     Route: 050
  5. TYSABRI [Suspect]
     Active Substance: NATALIZUMAB
     Route: 050
     Dates: start: 20120120, end: 20130816
  6. TYSABRI [Suspect]
     Active Substance: NATALIZUMAB
     Route: 050
     Dates: start: 20130917

REACTIONS (19)
  - Hip fracture [Recovered/Resolved]
  - Fall [Recovered/Resolved]
  - Device dislocation [Recovered/Resolved]
  - Osteoporosis [Unknown]
  - Impaired healing [Unknown]
  - Joint injury [Unknown]
  - Scoliosis [Not Recovered/Not Resolved]
  - Procedural pain [Unknown]
  - Product dose omission issue [Unknown]
  - Viral sinusitis [Unknown]
  - Sleep disorder [Unknown]
  - Poor quality sleep [Unknown]
  - Post procedural complication [Unknown]
  - Mobility decreased [Unknown]
  - Pain [Unknown]
  - Posture abnormal [Unknown]
  - Fatigue [Not Recovered/Not Resolved]
  - Pain in extremity [Not Recovered/Not Resolved]
  - Arthralgia [Not Recovered/Not Resolved]

NARRATIVE: CASE EVENT DATE: 20210101
